FAERS Safety Report 18134426 (Version 1)
Quarter: 2020Q3

REPORT INFORMATION
  Report Type: Spontaneous
  Country: US (occurrence: US)
  Receive Date: 20200811
  Receipt Date: 20200811
  Transmission Date: 20201103
  Serious: Yes (Hospitalization)
  Sender: FDA-Public Use
  Company Number: US-NOVOPROD-744367

PATIENT
  Sex: Male

DRUGS (3)
  1. LEVEMIR [Suspect]
     Active Substance: INSULIN DETEMIR
     Indication: TYPE 2 DIABETES MELLITUS
     Dosage: 47 U BID, 47 U QD
     Route: 058
     Dates: start: 2020
  2. NOVOLOG [Suspect]
     Active Substance: INSULIN ASPART
     Dosage: UNK(DOSE  INCREASED)
     Route: 058
  3. NOVOLOG [Suspect]
     Active Substance: INSULIN ASPART
     Indication: TYPE 2 DIABETES MELLITUS
     Dosage: UNK(15 UNITS TO 22 UNITS)
     Route: 058
     Dates: start: 2010

REACTIONS (2)
  - Blood glucose increased [Recovered/Resolved]
  - Myocardial infarction [Unknown]

NARRATIVE: CASE EVENT DATE: 20200403
